FAERS Safety Report 4706417-X (Version None)
Quarter: 2005Q2

REPORT INFORMATION
  Report Type: 
  Country: None (occurrence: None)
  Receive Date: 20050629
  Receipt Date: 20050408
  Transmission Date: 20051028
  Serious: No
  Sender: FDA-Public Use
  Company Number: 05P-163-0296893-00

PATIENT
  Age: 39 Year
  Sex: Male
  Weight: 105 kg

DRUGS (3)
  1. HUMIRA [Suspect]
     Indication: RHEUMATOID ARTHRITIS
     Dosage: 40 MG, 1 IN 2 WK, SUBCUTANEOUS
     Route: 058
     Dates: start: 20050306
  2. RABEPRAZOLE SODIUM [Concomitant]
  3. IBUPROFEN [Concomitant]

REACTIONS (1)
  - INJECTION SITE IRRITATION [None]
